FAERS Safety Report 4710894-8 (Version None)
Quarter: 2005Q3

REPORT INFORMATION
  Report Type: 
  Country: None (occurrence: None)
  Receive Date: 20050708
  Receipt Date: 20050628
  Transmission Date: 20060218
  Serious: Yes (Hospitalization)
  Sender: FDA-Public Use
  Company Number: 2005093403

PATIENT
  Age: 26 Year
  Sex: Female
  Weight: 90.7194 kg

DRUGS (2)
  1. ROLAIDS [Suspect]
     Dosage: BY THE HANDFUL, PRN, ORAL
     Route: 048
     Dates: start: 20050401
  2. RANITIDINE HYDROCHLORIDE [Concomitant]

REACTIONS (4)
  - BLOOD CALCIUM INCREASED [None]
  - BLOOD MAGNESIUM INCREASED [None]
  - DRUG EXPOSURE DURING PREGNANCY [None]
  - NEPHROLITHIASIS [None]
